FAERS Safety Report 11399746 (Version 1)
Quarter: 2015Q3

REPORT INFORMATION
  Report Type: Spontaneous
  Country: US (occurrence: US)
  Receive Date: 20150820
  Receipt Date: 20150820
  Transmission Date: 20151125
  Serious: Yes (Other)
  Sender: FDA-Public Use
  Company Number: US-BAYER-2015-403231

PATIENT
  Age: 25 Year
  Sex: Female

DRUGS (1)
  1. MIRENA [Suspect]
     Active Substance: LEVONORGESTREL
     Indication: CONTRACEPTION
     Dosage: 20 MCG/24HR, CONT
     Route: 015
     Dates: start: 201503

REACTIONS (5)
  - Genital haemorrhage [None]
  - Post procedural haemorrhage [None]
  - Procedural pain [None]
  - Amenorrhoea [None]
  - Abdominal pain lower [None]

NARRATIVE: CASE EVENT DATE: 2015
